FAERS Safety Report 4717088-0 (Version None)
Quarter: 2005Q3

REPORT INFORMATION
  Report Type: 
  Country: None (occurrence: None)
  Receive Date: 20050715
  Receipt Date: 20050331
  Transmission Date: 20060218
  Serious: Yes (Hospitalization)
  Sender: FDA-Public Use
  Company Number: 2005FR-00097

PATIENT
  Sex: Male

DRUGS (3)
  1. LORAZEPAM [Suspect]
     Dosage: ORAL
     Route: 048
     Dates: start: 20050201
  2. HEROIN [Concomitant]
  3. DIHYDROCODEINE [Concomitant]

REACTIONS (4)
  - ACCIDENTAL OVERDOSE [None]
  - AGGRESSION [None]
  - DEPRESSED LEVEL OF CONSCIOUSNESS [None]
  - VOMITING [None]
